FAERS Safety Report 6972433-0 (Version None)
Quarter: 2010Q3

REPORT INFORMATION
  Report Type: 
  Country: None (occurrence: None)
  Receive Date: 20100907
  Receipt Date: 20100823
  Transmission Date: 20110219
  Serious: Yes (Hospitalization)
  Sender: FDA-Public Use
  Company Number: 2010SP002397

PATIENT
  Sex: Female
  Weight: 68 kg

DRUGS (70)
  1. XOPENEX HFA [Suspect]
     Indication: CHRONIC OBSTRUCTIVE PULMONARY DISEASE
     Dosage: PRN; INHALATION; PRN; INHALATION
     Route: 055
     Dates: start: 20090118, end: 20090927
  2. XOPENEX HFA [Suspect]
     Indication: CHRONIC OBSTRUCTIVE PULMONARY DISEASE
     Dosage: PRN; INHALATION; PRN; INHALATION
     Route: 055
     Dates: start: 20100702
  3. FISH OIL [Concomitant]
  4. COD LIVER OIL [Concomitant]
  5. PREDNISONE [Concomitant]
  6. FUROSEMIDE [Concomitant]
  7. MAXALT /01406501/ [Concomitant]
  8. LIDODERM [Concomitant]
  9. SPIRIVA [Concomitant]
  10. VITAMIN A [Concomitant]
  11. ACIPHEX [Concomitant]
  12. LYRICA [Concomitant]
  13. HYDROCHLOROTHIAZIDE [Concomitant]
  14. FOSAMAX [Concomitant]
  15. FIBRE, DIETARY [Concomitant]
  16. MULTIVITAMINS PLUS IRON [Concomitant]
  17. CALCIUM W/MAGNESIUM/ZINC [Concomitant]
  18. LOVASTATIN [Concomitant]
  19. AMITRIPTYLINE HCL [Concomitant]
  20. HYDROCODONE W/ACEAMINOPHNE [Concomitant]
  21. FLECTOR /00372302/ [Concomitant]
  22. POLYETHYLENE GLYCOL [Concomitant]
  23. TUMS /00108001/ [Concomitant]
  24. POTASSIUM GLUCONATE TAB [Concomitant]
  25. ESTRACE [Concomitant]
  26. NEXIUM [Concomitant]
  27. OXYCODONE HCL AND ACETAMINOPHEN [Concomitant]
  28. POTASSIUM CHLORIDE [Concomitant]
  29. ADVAIR DISKUS 100/50 [Concomitant]
  30. MYCOSATATIN /00036501/ [Concomitant]
  31. SENOKOT [Concomitant]
  32. LEXAPRO [Concomitant]
  33. AVELOX [Concomitant]
  34. DELTASONE /00044701/ [Concomitant]
  35. PULMICORT [Concomitant]
  36. SOLU-MEDROL [Concomitant]
  37. SEPTRA [Concomitant]
  38. MUCINEX DM [Concomitant]
  39. ROBITUSSIN AC /00074201/ [Concomitant]
  40. CHRONULAC [Concomitant]
  41. MOTRIN [Concomitant]
  42. ROCEPHIN [Concomitant]
  43. SODIUM CHLORIDE [Concomitant]
  44. ZOFRAN [Concomitant]
  45. LOVENOX [Concomitant]
  46. PRILOSEC [Concomitant]
  47. ZITHROMAX [Concomitant]
  48. SYMBICORT [Concomitant]
  49. ATROVENT [Concomitant]
  50. PROVENTIL /00139501/ [Concomitant]
  51. PRAVACHOL [Concomitant]
  52. VARENICLINE [Concomitant]
  53. COLACE [Concomitant]
  54. ACETAMINOPHEN [Concomitant]
  55. OXICODONE [Concomitant]
  56. HUMULIN R [Concomitant]
  57. LEVAQUIN [Concomitant]
  58. VITAMIN A /00056001/ [Concomitant]
  59. SPIRIVA [Concomitant]
  60. ADVAIR DISKUS 100/50 [Concomitant]
  61. ZITHROMAX [Concomitant]
  62. PROMETH W/ CODEINE [Concomitant]
  63. DIFLUCAN [Concomitant]
  64. LACTULOSE [Concomitant]
  65. K-DUR [Concomitant]
  66. AVELOX [Concomitant]
  67. DULCOLAX /00061602/ [Concomitant]
  68. ALBUTEROL [Concomitant]
  69. K-LYTE /00067301/ [Concomitant]
  70. SODIUM CHLORIDE [Concomitant]

REACTIONS (6)
  - COUGH [None]
  - DYSPNOEA [None]
  - MUSCULOSKELETAL CHEST PAIN [None]
  - PNEUMONIA [None]
  - RIB FRACTURE [None]
  - WHEEZING [None]
